FAERS Safety Report 7685906-2 (Version None)
Quarter: 2011Q3

REPORT INFORMATION
  Report Type: 
  Country: None (occurrence: None)
  Receive Date: 20110816
  Receipt Date: 20110805
  Transmission Date: 20111222
  Serious: Yes (Hospitalization)
  Sender: FDA-Public Use
  Company Number: IT-ELI_LILLY_AND_COMPANY-IT201108002262

PATIENT
  Sex: Female

DRUGS (5)
  1. ESCITALOPRAM [Concomitant]
     Dosage: UNK UNK, UNKNOWN
     Route: 065
  2. GLIBEN [Concomitant]
     Dosage: 5 MG, QD
     Route: 048
     Dates: start: 20050101, end: 20100513
  3. HUMALOG [Suspect]
     Indication: TYPE 2 DIABETES MELLITUS
     Dosage: 30 IU, QD
     Route: 058
     Dates: start: 20081101, end: 20110513
  4. RAMIPRIL [Concomitant]
     Dosage: 2.5 MG, UNK
  5. ASPIRIN [Concomitant]
     Dosage: UNK

REACTIONS (1)
  - HYPOGLYCAEMIC COMA [None]
